FAERS Safety Report 8957033 (Version 1)
Quarter: 2012Q4

REPORT INFORMATION
  Report Type: 
  Country: US (occurrence: US)
  Receive Date: 20121210
  Receipt Date: 20121210
  Transmission Date: 20130627
  Serious: No
  Sender: FDA-Public Use
  Company Number: US-009507513-1212USA001817

PATIENT
  Sex: Female

DRUGS (4)
  1. COSOPT [Suspect]
     Indication: GLAUCOMA
     Dosage: 1 drop in left eye 3 tid
     Route: 047
  2. ALPHAGAN P [Concomitant]
  3. VIGAMOX [Concomitant]
  4. POLITRIM [Concomitant]

REACTIONS (3)
  - Muscular weakness [Not Recovered/Not Resolved]
  - Eye irritation [Not Recovered/Not Resolved]
  - Blood pressure decreased [Not Recovered/Not Resolved]
